FAERS Safety Report 6888151-3 (Version None)
Quarter: 2010Q3

REPORT INFORMATION
  Report Type: 
  Country: None (occurrence: None)
  Receive Date: 20100730
  Receipt Date: 20100728
  Transmission Date: 20110219
  Serious: Yes (Hospitalization, Disabling)
  Sender: FDA-Public Use
  Company Number: US-MERCK-1003USA03101

PATIENT
  Age: 52 Year
  Sex: Female

DRUGS (6)
  1. FOSAMAX [Suspect]
     Indication: OSTEOPOROSIS POSTMENOPAUSAL
     Route: 048
     Dates: start: 19980101, end: 20090101
  2. FOSAMAX [Suspect]
     Route: 048
     Dates: start: 20001201, end: 20080715
  3. FOSAMAX [Suspect]
     Route: 048
     Dates: end: 20090203
  4. FOSAMAX [Suspect]
     Indication: OSTEOPOROSIS PROPHYLAXIS
     Route: 048
     Dates: start: 19980101, end: 20090101
  5. FOSAMAX [Suspect]
     Route: 048
     Dates: start: 20001201, end: 20080715
  6. FOSAMAX [Suspect]
     Route: 048
     Dates: end: 20090203

REACTIONS (10)
  - ANAL CANCER [None]
  - BLOOD CHOLESTEROL INCREASED [None]
  - DENTAL CARIES [None]
  - FEMUR FRACTURE [None]
  - GINGIVAL SWELLING [None]
  - INFECTION [None]
  - OSTEONECROSIS OF JAW [None]
  - PAIN [None]
  - TOOTH ABSCESS [None]
  - TOOTH INFECTION [None]
